FAERS Safety Report 7485054-0 (Version None)
Quarter: 2011Q2

REPORT INFORMATION
  Report Type: 
  Country: None (occurrence: None)
  Receive Date: 20110517
  Receipt Date: 20101109
  Transmission Date: 20111010
  Serious: No
  Sender: FDA-Public Use
  Company Number: US-BAYER-2010-003243

PATIENT
  Sex: Male
  Weight: 97 kg

DRUGS (6)
  1. SYNTHROID [Concomitant]
  2. LIPITOR [Concomitant]
  3. EXTRA STRENGTH TYLENOL [Concomitant]
  4. ASPIRIN [Suspect]
  5. ALEVE-D SINUS + COLD [Suspect]
  6. TOPROL-XL [Concomitant]

REACTIONS (1)
  - CONSTIPATION [None]
